FAERS Safety Report 10914043 (Version 3)
Quarter: 2015Q1

REPORT INFORMATION
  Report Type: Report from Study
  Country: DK (occurrence: DK)
  Receive Date: 20150313
  Receipt Date: 20150327
  Transmission Date: 20150721
  Serious: Yes (Other)
  Sender: FDA-Public Use
  Company Number: DK-B.I. PHARMACEUTICALS,INC./RIDGEFIELD-2015-BI-01442DB

PATIENT
  Age: 62 Year
  Sex: Male
  Weight: 106 kg

DRUGS (5)
  1. OXYCODON [Concomitant]
     Active Substance: OXYCODONE
     Indication: SUPPORTIVE CARE
     Dosage: 10 MG
     Route: 048
     Dates: start: 20150113
  2. BIBF 1120 [Suspect]
     Active Substance: NINTEDANIB
     Dosage: 400 MG
     Route: 048
     Dates: start: 20150113
  3. BIBF 1120 [Suspect]
     Active Substance: NINTEDANIB
     Indication: NON-SMALL CELL LUNG CANCER
     Dosage: 400 MG
     Route: 048
     Dates: start: 20141107, end: 20150102
  4. DOCETAXEL. [Suspect]
     Active Substance: DOCETAXEL
     Indication: NON-SMALL CELL LUNG CANCER
     Dosage: 100 MG
     Route: 042
     Dates: start: 20141222, end: 20141222
  5. CONTALGIN [Concomitant]
     Active Substance: MORPHINE SULFATE
     Indication: SUPPORTIVE CARE
     Dosage: 20 MG
     Route: 048
     Dates: end: 20150113

REACTIONS (1)
  - Pulmonary embolism [Recovered/Resolved]

NARRATIVE: CASE EVENT DATE: 20150102
